FAERS Safety Report 7556799-9 (Version None)
Quarter: 2011Q2

REPORT INFORMATION
  Report Type: 
  Country: None (occurrence: None)
  Receive Date: 20110620
  Receipt Date: 20110610
  Transmission Date: 20111010
  Serious: Yes (Other)
  Sender: FDA-Public Use
  Company Number: DE-US-EMD SERONO, INC.-7051301

PATIENT
  Sex: Male
  Weight: 92 kg

DRUGS (1)
  1. REBIF [Suspect]
     Indication: MULTIPLE SCLEROSIS
     Route: 058
     Dates: start: 20090817, end: 20110307

REACTIONS (10)
  - BALANCE DISORDER [None]
  - PANNICULITIS [None]
  - DEPRESSION [None]
  - CEREBELLAR ATAXIA [None]
  - WRONG TECHNIQUE IN DRUG USAGE PROCESS [None]
  - HYPERREFLEXIA [None]
  - REFLEXES ABNORMAL [None]
  - PARAPARESIS [None]
  - PARAESTHESIA [None]
  - HYPERTONIA [None]
